FAERS Safety Report 15885798 (Version 2)
Quarter: 2019Q1

REPORT INFORMATION
  Report Type: Spontaneous
  Country: GB (occurrence: GB)
  Receive Date: 20190129
  Receipt Date: 20190201
  Transmission Date: 20190417
  Serious: Yes (Hospitalization)
  Sender: FDA-Public Use
  Company Number: GB-PFIZER INC-2019040379

PATIENT

DRUGS (1)
  1. PANTOPRAZOLE [Suspect]
     Active Substance: PANTOPRAZOLE
     Dosage: UNK
     Route: 042

REACTIONS (3)
  - Muscle spasms [Unknown]
  - Breath sounds abnormal [Unknown]
  - Cough [Unknown]

NARRATIVE: CASE EVENT DATE: 20181118
